FAERS Safety Report 15660008 (Version 1)
Quarter: 2018Q4

REPORT INFORMATION
  Report Type: Spontaneous
  Country: US (occurrence: US)
  Receive Date: 20181127
  Receipt Date: 20181127
  Transmission Date: 20190205
  Serious: No
  Sender: FDA-Public Use
  Company Number: US-SHIRE-US201845981

PATIENT
  Sex: Female

DRUGS (3)
  1. HAEGARDA [Concomitant]
     Active Substance: HUMAN C1-ESTERASE INHIBITOR
     Indication: PRODUCT USED FOR UNKNOWN INDICATION
  2. CINRYZE [Suspect]
     Active Substance: HUMAN C1-ESTERASE INHIBITOR
     Indication: PRODUCT USED FOR UNKNOWN INDICATION
     Dosage: 1500 IU, EVERY 3 DAYS
     Route: 065
     Dates: start: 2009
  3. FIRAZYR [Concomitant]
     Active Substance: ICATIBANT ACETATE
     Indication: PRODUCT USED FOR UNKNOWN INDICATION

REACTIONS (7)
  - Hereditary angioedema [Unknown]
  - Asthenia [Unknown]
  - Catheter site pain [Unknown]
  - Inappropriate schedule of product administration [Unknown]
  - Complication associated with device [Recovered/Resolved]
  - Prescribed overdose [Unknown]
  - Incontinence [Unknown]

NARRATIVE: CASE EVENT DATE: 2014
